FAERS Safety Report 4628281-X (Version None)
Quarter: 2005Q2

REPORT INFORMATION
  Report Type: 
  Country: None (occurrence: None)
  Receive Date: 20050406
  Receipt Date: 20030723
  Transmission Date: 20051028
  Serious: Yes (Death, Other)
  Sender: FDA-Public Use
  Company Number: US-NOVOPROD-230716

PATIENT
  Age: 23 Year
  Sex: Male
  Weight: 70 kg

DRUGS (1)
  1. NOVOSEVEN [Suspect]
     Indication: INJURY
     Dosage: IN TOTAL 1.2 MG
     Route: 042
     Dates: start: 20030601, end: 20030601

REACTIONS (2)
  - INFECTIVE THROMBOSIS [None]
  - VENA CAVA THROMBOSIS [None]
